FAERS Safety Report 8274470-5 (Version None)
Quarter: 2012Q2

REPORT INFORMATION
  Report Type: 
  Country: None (occurrence: None)
  Receive Date: 20120411
  Receipt Date: 20120329
  Transmission Date: 20120825
  Serious: Yes (Other)
  Sender: FDA-Public Use
  Company Number: US-ROCHE-1024491

PATIENT
  Sex: Male

DRUGS (4)
  1. BOCEPREVIR [Suspect]
     Indication: HEPATITIS C
     Dosage: AT 5 WEEK OF THE THERAPY
     Dates: start: 20111212
  2. COPEGUS [Suspect]
     Indication: HEPATITIS C
     Route: 048
     Dates: start: 20111113
  3. PEGINTERFERON ALFA-2A [Suspect]
     Indication: HEPATITIS C
     Dosage: WEEK 10 OF THE TREATMENT
     Route: 058
     Dates: start: 20111113
  4. COPEGUS [Suspect]
     Dosage: DOSE REDUCED
     Route: 048
     Dates: start: 20120125

REACTIONS (8)
  - HAEMOGLOBIN DECREASED [None]
  - FULL BLOOD COUNT DECREASED [None]
  - FATIGUE [None]
  - EMOTIONAL DISORDER [None]
  - PAIN IN JAW [None]
  - IRRITABILITY [None]
  - DYSPNOEA [None]
  - SYNCOPE [None]
